FAERS Safety Report 15792873 (Version 1)
Quarter: 2019Q1

REPORT INFORMATION
  Report Type: Spontaneous
  Country: CA (occurrence: CA)
  Receive Date: 20190107
  Receipt Date: 20190107
  Transmission Date: 20190417
  Serious: Yes (Life-Threatening, Disabling)
  Sender: FDA-Public Use
  Company Number: CA-TEVA-2019-CA-995394

PATIENT
  Age: 61 Year
  Sex: Male
  Weight: 96.25 kg

DRUGS (1)
  1. CIPROFLOXACIN. [Suspect]
     Active Substance: CIPROFLOXACIN
     Indication: GASTROINTESTINAL BACTERIAL OVERGROWTH
     Dosage: 500 MILLIGRAM DAILY;
     Route: 048

REACTIONS (7)
  - Arthralgia [Not Recovered/Not Resolved]
  - Coordination abnormal [Not Recovered/Not Resolved]
  - Myalgia [Not Recovered/Not Resolved]
  - Memory impairment [Not Recovered/Not Resolved]
  - Depression [Not Recovered/Not Resolved]
  - Muscular weakness [Not Recovered/Not Resolved]
  - Fatigue [Not Recovered/Not Resolved]
